FAERS Safety Report 7941937-6 (Version None)
Quarter: 2011Q4

REPORT INFORMATION
  Report Type: 
  Country: None (occurrence: None)
  Receive Date: 20111114
  Receipt Date: 20110613
  Transmission Date: 20120403
  Serious: Yes (Life-Threatening)
  Sender: FDA-Public Use
  Company Number: 2011028915

PATIENT
  Age: 56 Year
  Sex: Female
  Weight: 111.5849 kg

DRUGS (22)
  1. TRAMADOL HCL [Concomitant]
  2. ADVAIR DISKUS 100/50 [Concomitant]
  3. NITRO-PATCH (GLYCERYL [Concomitant]
  4. ROBAXIN [Concomitant]
  5. PROAIR (BEOLOMETASONE) [Concomitant]
  6. MAXZIDE [Concomitant]
  7. CARBIDOPA-LEVO (SINEMET) [Concomitant]
  8. NEXIUM [Concomitant]
  9. ALBUTEROL [Concomitant]
  10. BACLOFEN [Concomitant]
  11. HIZENTRA [Suspect]
  12. HIZENTRA [Suspect]
     Indication: CONGENITAL HYPOGAMMAGLOBULINAEMIA
     Dosage: (13 G 1X/WEEK, INFUSED 65 ML VIA 3-4 SITES OVER 1-2 HOURS SUBCUTANEOUS)
     Route: 058
     Dates: start: 20110304
  13. HIZENTRA [Suspect]
     Indication: CONGENITAL HYPOGAMMAGLOBULINAEMIA
     Dosage: (13 G 1X/WEEK, INFUSED 65 ML VIA 3-4 SITES OVER 1-2 HOURS SUBCUTANEOUS)
     Route: 058
     Dates: start: 20110609
  14. HIZENTRA [Suspect]
     Indication: CONGENITAL HYPOGAMMAGLOBULINAEMIA
     Dosage: (13 G 1X/WEEK, INFUSED 65 ML VIA 3-4 SITES OVER 1-2 HOURS SUBCUTANEOUS)
     Route: 058
     Dates: start: 20110609
  15. CELEBREX [Concomitant]
  16. DICLOMINE (OXYPHENCYCLIMINE HYDROCHLORIDE) [Concomitant]
  17. OXYGEN (OXYGEN) [Concomitant]
  18. SINGULAIR (MONTELAKAST) [Concomitant]
  19. NADOLOL [Concomitant]
  20. QUINIDINE (QUINIDINE) [Concomitant]
  21. NITROGLYCERIN [Concomitant]
  22. VYTORIN [Concomitant]

REACTIONS (1)
  - THROMBOSIS [None]
